FAERS Safety Report 15606840 (Version 4)
Quarter: 2019Q1

REPORT INFORMATION
  Report Type: Report from Study
  Country: CA (occurrence: CA)
  Receive Date: 20181112
  Receipt Date: 20190214
  Transmission Date: 20190417
  Serious: Yes (Hospitalization, Other)
  Sender: FDA-Public Use
  Company Number: CA-GLAXOSMITHKLINE-CA2018GSK203939

PATIENT
  Age: 41 Year
  Sex: Female

DRUGS (3)
  1. PREDNISONE. [Concomitant]
     Active Substance: PREDNISONE
     Indication: PRODUCT USED FOR UNKNOWN INDICATION
     Dosage: UNK
  2. NUCALA [Suspect]
     Active Substance: MEPOLIZUMAB
     Indication: ASTHMA
     Dosage: 100 MG, Z, MONTHLY
     Route: 042
     Dates: start: 20181217
  3. SALBUTAMOL SULPHATE [Suspect]
     Active Substance: ALBUTEROL SULFATE
     Indication: PRODUCT USED FOR UNKNOWN INDICATION
     Dosage: 100 UG, PRN
     Route: 055

REACTIONS (8)
  - Pulmonary granuloma [Unknown]
  - Skin fissures [Unknown]
  - Asthma [Unknown]
  - Pulmonary fibrosis [Not Recovered/Not Resolved]
  - Eosinophil count increased [Unknown]
  - Drug ineffective [Unknown]
  - Pulmonary mass [Not Recovered/Not Resolved]
  - Hepatic cyst [Recovered/Resolved]

NARRATIVE: CASE EVENT DATE: 20180920
